FAERS Safety Report 4773408-2 (Version None)
Quarter: 2005Q3

REPORT INFORMATION
  Report Type: 
  Country: None (occurrence: None)
  Receive Date: 20050920
  Receipt Date: 20050908
  Transmission Date: 20060218
  Serious: Yes (Hospitalization, Other)
  Sender: FDA-Public Use
  Company Number: GB-JNJFOC-20050700136

PATIENT
  Sex: Female

DRUGS (11)
  1. REMICADE [Suspect]
     Indication: RHEUMATOID ARTHRITIS
     Route: 042
  2. DURAGESIC-100 [Concomitant]
     Route: 065
  3. METHOTREXATE [Concomitant]
     Route: 065
  4. FOLIC ACID [Concomitant]
     Route: 065
  5. DELTACORTIL [Concomitant]
     Route: 065
  6. ZOMIG-ZMT [Concomitant]
     Route: 065
  7. BETOPTIC EYE DROPS [Concomitant]
     Route: 065
  8. VENLAFAXINE HCL [Concomitant]
     Route: 065
  9. TRAZODONE HCL [Concomitant]
     Route: 065
  10. XANAX [Concomitant]
     Route: 065
  11. PROTIUM [Concomitant]
     Route: 065

REACTIONS (1)
  - BREAST CANCER [None]
